FAERS Safety Report 4335387-1 (Version None)
Quarter: 2004Q2

REPORT INFORMATION
  Report Type: 
  Country: None (occurrence: None)
  Receive Date: 20040408
  Receipt Date: 20040408
  Transmission Date: 20050107
  Serious: Yes (Hospitalization)
  Sender: FDA-Public Use
  Company Number: None

PATIENT
  Sex: Female

DRUGS (7)
  1. ACETAMINOPHEN AND CODEINE PHOSPHATE #3 [Suspect]
     Indication: PAIN
     Dosage: 1 TAB PO Q4-6 H
     Route: 048
     Dates: start: 20031124, end: 20040104
  2. MORPHINE [Concomitant]
  3. IBUPROFEN [Concomitant]
  4. HYDROMORPHONE [Concomitant]
  5. PROMETHAZINE [Concomitant]
  6. METOCLOPRAMIDE [Concomitant]
  7. KETOROLAC [Concomitant]

REACTIONS (4)
  - ABDOMINAL PAIN LOWER [None]
  - BACK PAIN [None]
  - CHILLS [None]
  - HYPERHIDROSIS [None]
